FAERS Safety Report 12532714 (Version 2)
Quarter: 2020Q4

REPORT INFORMATION
  Report Type: Spontaneous
  Country: US (occurrence: US)
  Receive Date: 20160706
  Receipt Date: 20201118
  Transmission Date: 20210113
  Serious: Yes (Hospitalization, Other)
  Sender: FDA-Public Use
  Company Number: US-009507513-1606USA014741

PATIENT
  Age: 70 Year
  Sex: Male

DRUGS (2)
  1. PRINIVIL [Suspect]
     Active Substance: LISINOPRIL
     Indication: PRODUCT USED FOR UNKNOWN INDICATION
     Dosage: UNK
     Route: 048
  2. REMODULIN [Suspect]
     Active Substance: TREPROSTINIL
     Indication: PULMONARY ARTERIAL HYPERTENSION
     Dosage: 0.029 ?G/KG, CONTINUING
     Route: 058
     Dates: start: 20150803

REACTIONS (4)
  - Streptococcal infection [Unknown]
  - Streptococcus test positive [Unknown]
  - Facial paralysis [Recovering/Resolving]
  - Allergic oedema [Recovering/Resolving]

NARRATIVE: CASE EVENT DATE: 201605
